FAERS Safety Report 9058816 (Version 1)
Quarter: 2013Q1

REPORT INFORMATION
  Report Type: Spontaneous
  Country: US (occurrence: US)
  Receive Date: 20130204
  Receipt Date: 20130204
  Transmission Date: 20140127
  Serious: Yes (Other)
  Sender: FDA-Public Use
  Company Number: US-BAYER-2013-011816

PATIENT
  Age: 85 Year
  Sex: Female
  Weight: 72.56 kg

DRUGS (12)
  1. ALKA-SELTZER ORIGINAL [Suspect]
     Indication: CYSTITIS
     Dosage: 1 DF, QD
     Route: 048
     Dates: start: 20130124, end: 20130125
  2. ALKA-SELTZER ORIGINAL [Suspect]
     Indication: CYSTITIS
     Dosage: UNK
     Dates: start: 2011, end: 2011
  3. ASPIRIN [Concomitant]
  4. HYDROCHLOROTHIAZIDE [Concomitant]
  5. LIPITOR [Concomitant]
  6. POTASSIUM CHLORIDE [Concomitant]
  7. LEVOTHYROXINE [Concomitant]
  8. FISH OIL [Concomitant]
  9. MULTIVITAMIN [Concomitant]
  10. CALCIUM [Concomitant]
  11. VITAMIN C [Concomitant]
  12. GINKO BILOBA [Concomitant]

REACTIONS (5)
  - Pain [None]
  - Cystitis [None]
  - Blood urine present [Recovered/Resolved]
  - Pre-existing condition improved [Recovered/Resolved]
  - Off label use [None]
